FAERS Safety Report 17296242 (Version 2)
Quarter: 2020Q1

REPORT INFORMATION
  Report Type: Report from Study
  Country: None (occurrence: US)
  Receive Date: 20200121
  Receipt Date: 20200130
  Transmission Date: 20200409
  Serious: Yes (Other)
  Sender: FDA-Public Use
  Company Number: US-ABBVIE-20K-163-3235436-00

PATIENT
  Age: 25 Year
  Sex: Female

DRUGS (3)
  1. DOPAMAX [Concomitant]
     Active Substance: DOPAMINE HYDROCHLORIDE
     Indication: HUNGER
  2. HUMIRA [Suspect]
     Active Substance: ADALIMUMAB
     Indication: CROHN^S DISEASE
     Route: 058
     Dates: start: 20191004, end: 2019
  3. HUMIRA [Suspect]
     Active Substance: ADALIMUMAB
     Indication: CROHN^S DISEASE
     Route: 058
     Dates: start: 2019

REACTIONS (11)
  - Nephrolithiasis [Unknown]
  - Abdominal pain upper [Recovering/Resolving]
  - Injection site pain [Unknown]
  - Myalgia [Recovered/Resolved]
  - Device issue [Unknown]
  - Adverse food reaction [Unknown]
  - Diarrhoea [Recovering/Resolving]
  - Arthralgia [Recovered/Resolved]
  - Gastrectomy [Unknown]
  - Weight decreased [Not Recovered/Not Resolved]
  - Incorrect dose administered [Unknown]

NARRATIVE: CASE EVENT DATE: 2019
